FAERS Safety Report 5017829-1 (Version None)
Quarter: 2006Q2

REPORT INFORMATION
  Report Type: 
  Country: None (occurrence: None)
  Receive Date: 20060605
  Receipt Date: 20060103
  Transmission Date: 20061013
  Serious: Yes (Disabling, Other)
  Sender: FDA-Public Use
  Company Number: PHEH2006US00479

PATIENT
  Age: 62 Year
  Sex: Male
  Weight: 68.027 kg

DRUGS (5)
  1. ZOMETA [Suspect]
     Indication: MULTIPLE MYELOMA
     Dosage: 4 MG, MONTHLY
     Dates: start: 20020701, end: 20050701
  2. VELCADE [Concomitant]
  3. FENTANYL [Concomitant]
     Indication: BONE PAIN
     Dosage: 75 MG, Q72HRS
     Dates: start: 20020701, end: 20060401
  4. STEROIDS NOS [Concomitant]
     Indication: MULTIPLE MYELOMA
     Dosage: 40 MG, UNK
     Dates: start: 19940101, end: 19960101
  5. STEROIDS NOS [Concomitant]
     Dates: start: 20000101, end: 20010101

REACTIONS (1)
  - OSTEONECROSIS [None]
